FAERS Safety Report 15195130 (Version 1)
Quarter: 2018Q3

REPORT INFORMATION
  Report Type: Spontaneous
  Country: US (occurrence: US)
  Receive Date: 20180725
  Receipt Date: 20180725
  Transmission Date: 20181010
  Serious: Yes (Other)
  Sender: FDA-Public Use
  Company Number: US-PFIZER INC-2018291369

PATIENT
  Sex: Male

DRUGS (1)
  1. LYRICA [Suspect]
     Active Substance: PREGABALIN
     Indication: SPINAL OPERATION
     Dosage: 100 MG, 2X/DAY
     Route: 048

REACTIONS (5)
  - Pain [Unknown]
  - Vision blurred [Unknown]
  - Somnolence [Unknown]
  - Loss of consciousness [Unknown]
  - Dizziness [Unknown]
